FAERS Safety Report 5378176-1 (Version None)
Quarter: 2007Q3

REPORT INFORMATION
  Report Type: 
  Country: None (occurrence: None)
  Receive Date: 20070705
  Receipt Date: 20070627
  Transmission Date: 20080115
  Serious: Yes (Disabling)
  Sender: FDA-Public Use
  Company Number: JP-JNJFOC-20070700376

PATIENT
  Sex: Male

DRUGS (10)
  1. DOXIL [Suspect]
     Indication: KAPOSI'S SARCOMA
     Dosage: 30MG PER 3 TO 4 WEEKS
     Route: 042
  2. NORVIR [Concomitant]
     Indication: HIV INFECTION
     Route: 048
  3. REYATAZ [Concomitant]
     Indication: HIV INFECTION
     Route: 048
  4. EPZICOM [Concomitant]
     Indication: ACQUIRED IMMUNODEFICIENCY SYNDROME
     Route: 048
  5. VALIXA [Concomitant]
     Indication: CYTOMEGALOVIRUS OESOPHAGITIS
     Route: 048
  6. ZITHROMAC [Concomitant]
     Route: 048
  7. ZITHROMAC [Concomitant]
     Indication: MYCOBACTERIUM AVIUM COMPLEX INFECTION
     Route: 048
  8. ESANBUTOL [Concomitant]
     Indication: MYCOBACTERIUM AVIUM COMPLEX INFECTION
     Route: 065
  9. RIFABUTIN [Concomitant]
     Indication: MYCOBACTERIUM AVIUM COMPLEX INFECTION
     Route: 048
  10. BAKTAR [Concomitant]
     Indication: PNEUMOCYSTIS JIROVECI PNEUMONIA
     Route: 048

REACTIONS (1)
  - VISUAL FIELD DEFECT [None]
